FAERS Safety Report 8862713 (Version 1)
Quarter: 2012Q4

REPORT INFORMATION
  Report Type: 
  Country: DK (occurrence: DK)
  Receive Date: 20121026
  Receipt Date: 20121026
  Transmission Date: 20130627
  Serious: Yes (Hospitalization)
  Sender: FDA-Public Use
  Company Number: DK-INCYTE CORPORATION-2012IN002108

PATIENT
  Sex: Male

DRUGS (2)
  1. JAKAVI [Suspect]
     Indication: MYELOFIBROSIS
     Dosage: 10 mg, BID (2 DF, BID)
     Route: 048
  2. JAKAVI [Suspect]
     Dosage: 10 mg, BID (2 DF, BID)
     Route: 048

REACTIONS (2)
  - Peptic ulcer [Unknown]
  - Melaena [Unknown]
